FAERS Safety Report 7406688-5 (Version None)
Quarter: 2011Q2

REPORT INFORMATION
  Report Type: 
  Country: None (occurrence: None)
  Receive Date: 20110411
  Receipt Date: 20110406
  Transmission Date: 20111010
  Serious: Yes (Other)
  Sender: FDA-Public Use
  Company Number: US-PFIZER INC-2011076819

PATIENT
  Sex: Male

DRUGS (3)
  1. STRATTERA [Concomitant]
     Dosage: UNK
  2. RISPERIDONE [Concomitant]
     Dosage: UNK
  3. GEODON [Suspect]
     Indication: BIPOLAR DISORDER
     Dosage: 40 MG, 1X/DAY
     Route: 048
     Dates: start: 20110301, end: 20110301

REACTIONS (4)
  - PYREXIA [None]
  - DRUG INTOLERANCE [None]
  - MUSCLE RIGIDITY [None]
  - EXTRAPYRAMIDAL DISORDER [None]
